FAERS Safety Report 9804614 (Version 1)
Quarter: 2014Q1

REPORT INFORMATION
  Report Type: Report from Study
  Country: US (occurrence: TR)
  Receive Date: 20140108
  Receipt Date: 20140108
  Transmission Date: 20141002
  Serious: Yes (Death)
  Sender: FDA-Public Use
  Company Number: US-ACTELION-A-US2014-93330

PATIENT
  Age: 76 Year
  Sex: Female
  Weight: 65 kg

DRUGS (3)
  1. VENTAVIS [Suspect]
     Indication: PULMONARY HYPERTENSION
     Dosage: UNK, 5X1
     Route: 055
     Dates: start: 20120911, end: 201308
  2. COUMADIN [Concomitant]
  3. ALDACTONE [Concomitant]

REACTIONS (2)
  - Cardiopulmonary failure [Fatal]
  - General physical health deterioration [Unknown]
